FAERS Safety Report 5318178-4 (Version None)
Quarter: 2007Q1

REPORT INFORMATION
  Report Type: 
  Country: None (occurrence: None)
  Receive Date: 20070201
  Receipt Date: 20061114
  Transmission Date: 20070707
  Serious: Yes (Hospitalization)
  Sender: FDA-Public Use
  Company Number: MEDI-0005130

PATIENT
  Age: 69 Year
  Sex: Female

DRUGS (3)
  1. ETHYOL [Suspect]
     Indication: RADIOTHERAPY
     Dosage: 500 MG, 5 IN 5 D, SUBCUTANEOUS
     Route: 058
     Dates: start: 20060901, end: 20060907
  2. RADIATION THERAPY [Concomitant]
  3. CISPLATIN [Concomitant]

REACTIONS (1)
  - RENAL FAILURE ACUTE [None]
